FAERS Safety Report 7025246-8 (Version None)
Quarter: 2010Q4

REPORT INFORMATION
  Report Type: 
  Country: None (occurrence: None)
  Receive Date: 20101001
  Receipt Date: 20100924
  Transmission Date: 20110411
  Serious: Yes (Other)
  Sender: FDA-Public Use
  Company Number: DE-ABBOTT-10P-062-0673251-00

PATIENT
  Sex: Female

DRUGS (1)
  1. HUMIRA [Suspect]
     Indication: CROHN'S DISEASE
     Route: 058
     Dates: start: 20100818

REACTIONS (5)
  - FALL [None]
  - HYPOGLYCAEMIA [None]
  - JAW FRACTURE [None]
  - LOSS OF CONSCIOUSNESS [None]
  - TOOTH LOSS [None]
